FAERS Safety Report 5408313-1 (Version None)
Quarter: 2007Q3

REPORT INFORMATION
  Report Type: 
  Country: None (occurrence: None)
  Receive Date: 20070806
  Receipt Date: 20070806
  Transmission Date: 20080115
  Serious: Yes (Life-Threatening, Hospitalization)
  Sender: FDA-Public Use
  Company Number: None

PATIENT
  Age: 76 Year
  Sex: Male

DRUGS (3)
  1. DIGOXIN [Suspect]
     Dosage: 0.125MG EVERY DAY PO
     Route: 048
     Dates: start: 20061218, end: 20070618
  2. DILTIAZEM [Suspect]
     Indication: CORONARY ARTERY DISEASE
     Dosage: 240MG EVERY DAY PO
     Route: 048
     Dates: start: 20060203, end: 20070618
  3. DILTIAZEM [Suspect]
     Indication: HYPERTENSION
     Dosage: 240MG EVERY DAY PO
     Route: 048
     Dates: start: 20060203, end: 20070618

REACTIONS (2)
  - ATRIOVENTRICULAR BLOCK COMPLETE [None]
  - BRADYCARDIA [None]
